FAERS Safety Report 13119612 (Version 2)
Quarter: 2017Q1

REPORT INFORMATION
  Report Type: Spontaneous
  Country: RU (occurrence: RU)
  Receive Date: 20170116
  Receipt Date: 20170320
  Transmission Date: 20170428
  Serious: Yes (Hospitalization)
  Sender: FDA-Public Use
  Company Number: RU-ROCHE-1879419

PATIENT
  Age: 51 Year
  Sex: Female

DRUGS (13)
  1. CARDIOMAGNYL [Concomitant]
     Active Substance: ASPIRIN\MAGNESIUM HYDROXIDE
     Route: 048
  2. VITAMIN C [Concomitant]
     Active Substance: ASCORBIC ACID
  3. METHYLETHYLPIRIDINOL [Concomitant]
  4. DIROTON [Concomitant]
     Active Substance: LISINOPRIL
     Route: 048
  5. ANAFERON [Concomitant]
     Route: 048
     Dates: start: 201611, end: 201612
  6. NIMESULIDE [Concomitant]
     Active Substance: NIMESULIDE
  7. DEXAMETHASONE. [Concomitant]
     Active Substance: DEXAMETHASONE
  8. BONVIVA [Suspect]
     Active Substance: IBANDRONATE SODIUM
     Indication: PULMONARY TUBERCULOSIS
     Dosage: LAST INJECTION WAS ON 15-DEC-2016
     Route: 042
     Dates: start: 201606, end: 20161215
  9. GENTAMICINE [Concomitant]
     Active Substance: GENTAMICIN
  10. REAMBERIN [Concomitant]
     Route: 042
  11. LORATADIN [Concomitant]
     Active Substance: LORATADINE
  12. CYCLOFERON [Concomitant]
     Active Substance: MEGLUMINE
  13. DICLOFENAC [Concomitant]
     Active Substance: DICLOFENAC
     Route: 030

REACTIONS (4)
  - Off label use [Unknown]
  - Astigmatism [Recovering/Resolving]
  - Ocular vasculitis [Not Recovered/Not Resolved]
  - Myopia [Not Recovered/Not Resolved]

NARRATIVE: CASE EVENT DATE: 20161217
